FAERS Safety Report 14681797 (Version 1)
Quarter: 2018Q1

REPORT INFORMATION
  Report Type: Spontaneous
  Country: US (occurrence: US)
  Receive Date: 20180326
  Receipt Date: 20180326
  Transmission Date: 20180509
  Serious: Yes (Hospitalization)
  Sender: FDA-Public Use
  Company Number: US-PFIZER INC-2018119725

PATIENT
  Age: 73 Year
  Sex: Female
  Weight: 92 kg

DRUGS (1)
  1. CHANTIX [Suspect]
     Active Substance: VARENICLINE TARTRATE
     Indication: SMOKING CESSATION THERAPY
     Dosage: 1 MG, 2X/DAY
     Route: 048

REACTIONS (5)
  - Bronchitis [Unknown]
  - Aphonia [Unknown]
  - Nausea [Unknown]
  - Pneumonia [Unknown]
  - Productive cough [Not Recovered/Not Resolved]
